FAERS Safety Report 10568890 (Version 1)
Quarter: 2014Q4

REPORT INFORMATION
  Report Type: Spontaneous
  Country: US (occurrence: IT)
  Receive Date: 20141106
  Receipt Date: 20141106
  Transmission Date: 20150529
  Serious: Yes (Hospitalization)
  Sender: FDA-Public Use
  Company Number: IT-FRI-1000072060

PATIENT
  Age: 22 Year
  Sex: Female

DRUGS (5)
  1. ASENAPINE [Suspect]
     Active Substance: ASENAPINE
     Dosage: 10 MG
     Dates: start: 2014, end: 2014
  2. LAMOTRIGINE. [Suspect]
     Active Substance: LAMOTRIGINE
     Indication: BIPOLAR DISORDER
     Dosage: 100 MG (TITRATION WAS SET AS WEEKLY DOSE INCREASE OF 25 MG STARTING WITH 25 MG IN THE EVENING)
     Dates: start: 201408, end: 201409
  3. ASENAPINE [Suspect]
     Active Substance: ASENAPINE
     Indication: BIPOLAR DISORDER
     Dosage: 20 MG
     Dates: start: 201408, end: 2014
  4. LITHIUM [Concomitant]
     Active Substance: LITHIUM CARBONATE
     Dosage: 600 MG
     Dates: start: 201408, end: 201409
  5. ASENAPINE [Suspect]
     Active Substance: ASENAPINE
     Dosage: 20 MG
     Dates: start: 2014

REACTIONS (1)
  - Stevens-Johnson syndrome [Recovered/Resolved]

NARRATIVE: CASE EVENT DATE: 201409
